FAERS Safety Report 8267063-7 (Version None)
Quarter: 2012Q2

REPORT INFORMATION
  Report Type: 
  Country: None (occurrence: None)
  Receive Date: 20120409
  Receipt Date: 20120330
  Transmission Date: 20120825
  Serious: Yes (Hospitalization, Other)
  Sender: FDA-Public Use
  Company Number: US-BAYER-201041723NA

PATIENT
  Age: 18 Year
  Sex: Female
  Weight: 91 kg

DRUGS (7)
  1. DICYCLOMINE [Concomitant]
     Dosage: UNK
     Dates: start: 20080101
  2. DILAUDID [Concomitant]
     Dosage: UNK
     Dates: start: 20080117
  3. DROSPIRENONE AND ETHINYL ESTRADIOL [Suspect]
     Dosage: UNK
     Dates: start: 20080714, end: 20090716
  4. REGLAN [Concomitant]
     Dosage: UNK
     Dates: start: 20080117
  5. YASMIN [Suspect]
     Dosage: UNK UNK, UNK
     Route: 048
     Dates: start: 20020520, end: 20090216
  6. CIPROFLOXACIN HYDROCHLORIDE [Concomitant]
     Dosage: UNK
     Dates: start: 20080101
  7. NAPROXEN (ALEVE) [Concomitant]
     Indication: PAIN
     Dosage: UNK
     Dates: start: 20080117

REACTIONS (2)
  - CHOLECYSTECTOMY [None]
  - CHOLELITHIASIS [None]
